FAERS Safety Report 13166102 (Version 1)
Quarter: 2017Q1

REPORT INFORMATION
  Report Type: Spontaneous
  Country: FR (occurrence: FR)
  Receive Date: 20170131
  Receipt Date: 20170131
  Transmission Date: 20170428
  Serious: Yes (Disabling)
  Sender: FDA-Public Use
  Company Number: FR-ROCHE-1885989

PATIENT
  Age: 69 Year
  Sex: Female

DRUGS (6)
  1. SEROPRAM [Concomitant]
     Active Substance: CITALOPRAM HYDROBROMIDE
     Route: 065
  2. CARBOPLATINE [Concomitant]
     Active Substance: CARBOPLATIN
  3. PACLITAXEL. [Concomitant]
     Active Substance: PACLITAXEL
     Route: 065
  4. AVASTIN [Suspect]
     Active Substance: BEVACIZUMAB
     Indication: OVARIAN CANCER
     Route: 041
     Dates: start: 20151110
  5. TEMESTA (FRANCE) [Concomitant]
     Active Substance: LORAZEPAM
     Route: 065
  6. ZYPREXA [Concomitant]
     Active Substance: OLANZAPINE
     Route: 065

REACTIONS (2)
  - Periarthritis [Not Recovered/Not Resolved]
  - Rotator cuff syndrome [Not Recovered/Not Resolved]

NARRATIVE: CASE EVENT DATE: 201603
